FAERS Safety Report 17308268 (Version 1)
Quarter: 2020Q1

REPORT INFORMATION
  Report Type: Spontaneous
  Country: GB (occurrence: GB)
  Receive Date: 20200123
  Receipt Date: 20200123
  Transmission Date: 20200409
  Serious: Yes (Hospitalization, Other)
  Sender: FDA-Public Use
  Company Number: GB-MYLANLABS-2020M1007141

PATIENT
  Age: 69 Year
  Sex: Female

DRUGS (1)
  1. RANITIDINE. [Suspect]
     Active Substance: RANITIDINE
     Indication: PRODUCT USED FOR UNKNOWN INDICATION
     Dosage: UNKNOWN DOSE

REACTIONS (5)
  - Ulcer haemorrhage [Recovering/Resolving]
  - Product dispensing error [Unknown]
  - Injury [Recovering/Resolving]
  - Product dose omission [Unknown]
  - Insomnia [Recovering/Resolving]
